FAERS Safety Report 20443616 (Version 3)
Quarter: 2022Q2

REPORT INFORMATION
  Report Type: Report from Study
  Country: US (occurrence: US)
  Receive Date: 20220208
  Receipt Date: 20220427
  Transmission Date: 20220720
  Serious: Yes (Hospitalization)
  Sender: FDA-Public Use
  Company Number: US-ABBVIE-22K-163-4268965-00

PATIENT
  Sex: Male
  Weight: 68.100 kg

DRUGS (1)
  1. IMBRUVICA [Suspect]
     Active Substance: IBRUTINIB
     Indication: Chronic lymphocytic leukaemia
     Route: 048
     Dates: start: 202108

REACTIONS (4)
  - Limb injury [Recovered/Resolved]
  - Peripheral swelling [Recovering/Resolving]
  - Traumatic haematoma [Recovering/Resolving]
  - Lymphadenopathy [Unknown]
